FAERS Safety Report 8301723-4 (Version None)
Quarter: 2012Q1

REPORT INFORMATION
  Report Type: 
  Country: None (occurrence: None)
  Receive Date: 20120326
  Receipt Date: 20110426
  Transmission Date: 20120608
  Serious: Yes (Other)
  Sender: FDA-Public Use
  Company Number: PHEH2009US11306

PATIENT
  Age: 53 Year
  Sex: Female

DRUGS (11)
  1. CALCIUM CARBONATE [Concomitant]
  2. VITAMIN TAB [Concomitant]
  3. SPRYCEL [Suspect]
  4. PRILOSEC [Concomitant]
  5. TASIGNA [Suspect]
     Indication: CHRONIC MYELOID LEUKAEMIA
     Dosage: 400 MG, BID, ORAL ; 200 MG, BID, ORAL
     Route: 048
     Dates: start: 20090729, end: 20090902
  6. TASIGNA [Suspect]
     Indication: CHRONIC MYELOID LEUKAEMIA
     Dosage: 400 MG, BID, ORAL ; 200 MG, BID, ORAL
     Route: 048
     Dates: start: 20110201, end: 20110401
  7. GLEEVEC [Suspect]
  8. LIPITOR [Concomitant]
  9. CLARITIN [Concomitant]
  10. B COMPLEX (NICOTINAMIDE, PYRIDOXINE HYROCHLORIDE, RIBOFLAVIN, THIAMINE [Concomitant]
  11. HYDROCHLOROTHIAZIDE [Concomitant]

REACTIONS (1)
  - THROMBOCYTOPENIA [None]
